FAERS Safety Report 18425659 (Version 2)
Quarter: 2020Q4

REPORT INFORMATION
  Report Type: Report from Study
  Country: US (occurrence: US)
  Receive Date: 20201026
  Receipt Date: 20201119
  Transmission Date: 20210114
  Serious: Yes (Hospitalization, Other)
  Sender: FDA-Public Use
  Company Number: US-B.I. PHARMACEUTICALS,INC./RIDGEFIELD-2020-MR-025910

PATIENT
  Age: 72 Year
  Sex: Female
  Weight: 63.3 kg

DRUGS (3)
  1. GILOTRIF [Suspect]
     Active Substance: AFATINIB
     Indication: NON-SMALL CELL LUNG CANCER METASTATIC
     Route: 048
     Dates: start: 20200501, end: 20200529
  2. GILOTRIF [Suspect]
     Active Substance: AFATINIB
     Route: 048
  3. GILOTRIF [Suspect]
     Active Substance: AFATINIB

REACTIONS (6)
  - Illness [Unknown]
  - Pneumonia [Unknown]
  - Dyspnoea [Unknown]
  - Diarrhoea [Unknown]
  - Malignant neoplasm progression [Not Recovered/Not Resolved]
  - Fatigue [Unknown]

NARRATIVE: CASE EVENT DATE: 20200526
